FAERS Safety Report 9714410 (Version 1)
Quarter: 2013Q4

REPORT INFORMATION
  Report Type: Spontaneous
  Country: US (occurrence: US)
  Receive Date: 20131126
  Receipt Date: 20131126
  Transmission Date: 20140711
  Serious: No
  Sender: FDA-Public Use
  Company Number: US-009507513-1311USA010333

PATIENT
  Age: 32 Year
  Sex: Female

DRUGS (7)
  1. SINGULAIR [Suspect]
     Indication: ASTHMA
     Route: 048
  2. ALBUTEROL [Suspect]
     Indication: ASTHMA
  3. CORTICOSTEROIDS (UNSPECIFIED) [Suspect]
     Indication: ASTHMA
     Route: 055
  4. EPINEPHRINE [Suspect]
     Route: 058
  5. SOLU-MEDROL [Suspect]
  6. IPRATROPIUM BROMIDE [Suspect]
  7. SODIUM BICARBONATE [Suspect]

REACTIONS (1)
  - Exposure during pregnancy [Recovered/Resolved]
